FAERS Safety Report 7758980-2 (Version None)
Quarter: 2011Q3

REPORT INFORMATION
  Report Type: 
  Country: None (occurrence: None)
  Receive Date: 20110916
  Receipt Date: 20110916
  Transmission Date: 20111222
  Serious: No
  Sender: FDA-Public Use
  Company Number: None

PATIENT
  Age: 74 Year
  Sex: Female
  Weight: 102.0593 kg

DRUGS (5)
  1. NIASPAN [Concomitant]
  2. DIOVAN [Concomitant]
  3. ATENOLOL [Concomitant]
  4. CRANB W VIT C (STARTED 7/11) [Concomitant]
  5. TRICOR [Suspect]
     Indication: BLOOD TRIGLYCERIDES INCREASED
     Dosage: 145 PO MG PO
     Route: 048
     Dates: start: 20101201, end: 20110720

REACTIONS (1)
  - BLOOD CREATININE INCREASED [None]
